FAERS Safety Report 24071337 (Version 2)
Quarter: 2024Q3

REPORT INFORMATION
  Report Type: Report from Study
  Country: JP (occurrence: JP)
  Receive Date: 20240710
  Receipt Date: 20240710
  Transmission Date: 20241017
  Serious: No
  Sender: ROCHE
  Company Number: JP-CHUGAI-2024000780

PATIENT
  Age: 25 Year
  Sex: Female

DRUGS (3)
  1. EVRYSDI [Suspect]
     Active Substance: RISDIPLAM
     Indication: Spinal muscular atrophy
     Dosage: 5 MILLIGRAM, QD
     Route: 065
     Dates: start: 20211130, end: 202301
  2. BEPOTASTINE BESYLATE [Concomitant]
     Active Substance: BEPOTASTINE BESYLATE
     Dosage: UNK
     Dates: start: 20220202
  3. LOCOID [Concomitant]
     Active Substance: HYDROCORTISONE BUTYRATE
     Dosage: 5G
     Dates: start: 20221228, end: 20230502

REACTIONS (1)
  - Nausea [Recovering/Resolving]

NARRATIVE: CASE EVENT DATE: 20231115
